FAERS Safety Report 18601846 (Version 1)
Quarter: 2020Q4

REPORT INFORMATION
  Report Type: Report from Study
  Country: CO (occurrence: CO)
  Receive Date: 20201210
  Receipt Date: 20201210
  Transmission Date: 20210114
  Serious: Yes (Other)
  Sender: FDA-Public Use
  Company Number: NVSC2020CO277817

PATIENT
  Age: 70 Year
  Sex: Female
  Weight: 54 kg

DRUGS (7)
  1. EXEMESTANE. [Concomitant]
     Active Substance: EXEMESTANE
     Indication: PRODUCT USED FOR UNKNOWN INDICATION
     Dosage: UNK
     Route: 065
     Dates: end: 20201006
  2. KISQALI [Suspect]
     Active Substance: RIBOCICLIB
     Indication: BREAST CANCER METASTATIC
     Dosage: 3 DF, QD (START DATE: 1 YEARS AGO)
     Route: 048
     Dates: end: 20201006
  3. ACETYLSALICYLIC ACID [Concomitant]
     Active Substance: ASPIRIN
     Indication: CARDIOVASCULAR INSUFFICIENCY
     Dosage: UNK, QD
     Route: 048
  4. METFORMIN [Suspect]
     Active Substance: METFORMIN HYDROCHLORIDE
     Indication: DIABETES MELLITUS
     Dosage: UNK (ONCE DAILY)
     Route: 048
  5. LEVOTHYROXINE. [Concomitant]
     Active Substance: LEVOTHYROXINE
     Indication: THYROID DISORDER
     Dosage: UNK, QD
     Route: 065
  6. INSULIN GLARGINE [Concomitant]
     Active Substance: INSULIN GLARGINE
     Indication: DIABETES MELLITUS
     Dosage: UNK UNK, QD (30 UNITS, ONCE DAILY)
     Route: 058
  7. APIDRA [Concomitant]
     Active Substance: INSULIN GLULISINE
     Indication: DIABETES MELLITUS
     Dosage: UNK, Q8H (6 UNITS, EVERY 8 HOURS)
     Route: 058

REACTIONS (3)
  - Metastases to bone [Unknown]
  - SARS-CoV-2 test positive [Unknown]
  - Treatment failure [Unknown]

NARRATIVE: CASE EVENT DATE: 2020
